FAERS Safety Report 14546139 (Version 12)
Quarter: 2020Q3

REPORT INFORMATION
  Report Type: Report from Study
  Country: PL (occurrence: PL)
  Receive Date: 20180219
  Receipt Date: 20180719
  Transmission Date: 20201104
  Serious: Yes (Death, Hospitalization)
  Sender: FDA-Public Use
  Company Number: PL-ROCHE-2065719

PATIENT
  Age: 60 Year
  Sex: Female
  Weight: 76 kg

DRUGS (38)
  1. ATEZOLIZUMAB. [Suspect]
     Active Substance: ATEZOLIZUMAB
     Indication: B-CELL LYMPHOMA
     Dosage: DATE OF MOST RECENT DOSE OF ATEZOLIZUMAB PRIOR TO AE ONSET 11 JAN 2018?DOSE OF LAST ATEZOLIZUMAB ADM
     Route: 042
     Dates: start: 20180111
  2. LEVOTHYROXINUM [Concomitant]
     Indication: HYPOTHYROIDISM
     Dosage: 25 UG X1 ORAL
     Route: 048
     Dates: start: 20180219
  3. FILGRASTIMUM [Concomitant]
     Dosage: 30 MLN. UNITS X 1
     Route: 058
     Dates: start: 20180207, end: 20180208
  4. FOLIC ACID. [Concomitant]
     Active Substance: FOLIC ACID
     Indication: ANAEMIA
     Route: 048
     Dates: start: 20180305, end: 20180319
  5. ALBUMIN [Concomitant]
     Active Substance: ALBUMIN HUMAN
     Indication: HYPOALBUMINAEMIA
     Route: 042
     Dates: start: 20180322
  6. FUROSEMIDUM [Concomitant]
     Active Substance: FUROSEMIDE
     Route: 042
     Dates: start: 20180317, end: 20180317
  7. NATRIUM CHLORATUM [Concomitant]
     Indication: HYPOKALAEMIA
     Route: 042
     Dates: start: 20180322, end: 20180322
  8. OMEPRAZOLUM [Concomitant]
     Dosage: 1 TIME
     Route: 042
     Dates: start: 20180211
  9. OMEPRAZOLUM [Concomitant]
     Route: 065
     Dates: start: 20180211
  10. ENOXAPARINUM NATRICUM [Concomitant]
     Dosage: 40 MG X 1 S.C.
     Route: 058
     Dates: start: 20180224, end: 20180227
  11. POLATUZUMAB VEDOTIN. [Suspect]
     Active Substance: POLATUZUMAB VEDOTIN
     Indication: B-CELL LYMPHOMA
     Dosage: DATE OF MOST RECENT DOSE OF POLATUZUMAB VEDOTIN PRIOR TO AE ONSET 11 JAN 2018?DOSE OF LAST POLATUZUM
     Route: 042
     Dates: start: 20171221
  12. OBINUTUZUMAB. [Suspect]
     Active Substance: OBINUTUZUMAB
     Indication: B-CELL LYMPHOMA
     Dosage: DATE OF MOST RECENT DOSE OF OBINUTUZUMAB PRIOR TO AE ONSET 11 JAN 2018?DOSE OF LAST OBINUTUZUMAB ADM
     Route: 042
     Dates: start: 20171221
  13. KCL [Concomitant]
     Active Substance: POTASSIUM CHLORIDE
     Route: 042
     Dates: start: 20180205, end: 20180205
  14. METOPROLOL. [Concomitant]
     Active Substance: METOPROLOL
     Route: 048
     Dates: start: 20180306
  15. FUROSEMIDUM [Concomitant]
     Active Substance: FUROSEMIDE
     Indication: OEDEMA
     Route: 065
     Dates: start: 20180320
  16. KCL [Concomitant]
     Active Substance: POTASSIUM CHLORIDE
     Indication: HYPOKALAEMIA
     Route: 042
     Dates: start: 20180202, end: 20180205
  17. KALDYUM [Concomitant]
     Active Substance: POTASSIUM CHLORIDE
     Indication: HYPOKALAEMIA
     Route: 048
     Dates: start: 20180205, end: 20180322
  18. ALLOPURINOLUM [Concomitant]
     Indication: PROPHYLAXIS
     Route: 065
     Dates: start: 20171221, end: 20180130
  19. CILAZAPRILUM [Concomitant]
     Indication: HYPERTENSION
     Dosage: 1 TIMES
     Route: 048
     Dates: start: 20180129, end: 20180227
  20. OMEPRAZOLUM [Concomitant]
     Route: 048
     Dates: start: 20180130, end: 20180205
  21. GANCICLOVIR. [Concomitant]
     Active Substance: GANCICLOVIR
     Indication: CYTOMEGALOVIRUS INFECTION
     Dosage: 2 TIMES
     Route: 065
     Dates: start: 20180313, end: 20180321
  22. ENOXAPARINUM NATRICUM [Concomitant]
     Indication: PULMONARY EMBOLISM
     Route: 065
     Dates: start: 20180205, end: 20180213
  23. ENOXAPARINUM NATRICUM [Concomitant]
     Dosage: 70 MG X 2 S.C.
     Route: 058
     Dates: start: 20180228
  24. PLATELETS [Concomitant]
     Active Substance: HUMAN PLATELET, ALLOGENIC
     Indication: THROMBOCYTOPENIA
     Route: 065
     Dates: start: 20180321, end: 20180322
  25. KCL [Concomitant]
     Active Substance: POTASSIUM CHLORIDE
     Route: 042
     Dates: start: 20180206
  26. AUGMENTIN [Concomitant]
     Active Substance: AMOXICILLIN\CLAVULANATE POTASSIUM
     Indication: COUGH
     Dosage: 2 TIMES
     Route: 048
     Dates: start: 20180119, end: 20180126
  27. METOPROLOL. [Concomitant]
     Active Substance: METOPROLOL
     Indication: SINUS TACHYCARDIA
     Dosage: 50MG X1 P.O., 25 MG X1 P.O.
     Route: 048
     Dates: start: 20180129, end: 20180305
  28. TORASEMIDUM [Concomitant]
     Indication: HYPERTENSION
     Dosage: 2 TIMES
     Route: 048
     Dates: start: 20180129, end: 20180227
  29. PIPERACILLIN/TAZOBACTAM [Concomitant]
     Active Substance: PIPERACILLIN SODIUM\TAZOBACTAM SODIUM
     Indication: UPPER RESPIRATORY TRACT INFECTION
     Route: 042
     Dates: start: 20180223, end: 20180313
  30. PACKED RED BLOOD CELLS [Concomitant]
     Active Substance: HUMAN RED BLOOD CELL
     Indication: ANAEMIA
     Dosage: 1 UNIT
     Route: 065
     Dates: start: 20180322, end: 20180322
  31. FILGRASTIMUM [Concomitant]
     Dosage: 30 MLN. UNITS X 1
     Route: 058
     Dates: start: 20180317, end: 20180322
  32. ACYCLOVIR. [Concomitant]
     Active Substance: ACYCLOVIR
     Route: 048
     Dates: start: 20180214, end: 20180313
  33. ENOXAPARINUM NATRICUM [Concomitant]
     Dosage: 40 MG X 1 S.C.
     Route: 058
     Dates: start: 20180205, end: 20180213
  34. IVIG [Concomitant]
     Active Substance: HUMAN IMMUNOGLOBULIN G
     Indication: MUSCULAR WEAKNESS
     Route: 042
     Dates: start: 20180320, end: 20180322
  35. FUROSEMIDUM [Concomitant]
     Active Substance: FUROSEMIDE
     Route: 042
     Dates: start: 20180205, end: 20180205
  36. AMOXYCILLIN [Concomitant]
     Active Substance: AMOXICILLIN
     Indication: UPPER RESPIRATORY TRACT INFECTION
     Route: 065
     Dates: start: 20171227, end: 20180102
  37. FILGRASTIMUM [Concomitant]
     Indication: NEUTROPENIA
     Dosage: 30 MLN. UNITS X 1
     Route: 058
     Dates: start: 20180223, end: 20180226
  38. LINEZOLIDUM [Concomitant]
     Indication: DIARRHOEA
     Route: 042
     Dates: start: 20180315, end: 20180319

REACTIONS (5)
  - Pneumonitis [Recovering/Resolving]
  - Stomatitis [Recovering/Resolving]
  - Erythema [Recovering/Resolving]
  - Bronchopulmonary aspergillosis [Fatal]
  - Conjunctivitis [Recovering/Resolving]

NARRATIVE: CASE EVENT DATE: 20180129
